FAERS Safety Report 24918265 (Version 1)
Quarter: 2025Q1

REPORT INFORMATION
  Report Type: Spontaneous
  Country: US (occurrence: US)
  Receive Date: 20250203
  Receipt Date: 20250203
  Transmission Date: 20250409
  Serious: Yes (Hospitalization, Other)
  Sender: PAREXEL
  Company Number: US-SCPHARMACEUTICALS-2024-SCPH-US000728

PATIENT

DRUGS (1)
  1. FUROSCIX [Suspect]
     Active Substance: FUROSEMIDE
     Indication: Hypervolaemia
     Route: 058
     Dates: start: 20241205, end: 20241205

REACTIONS (3)
  - Urinary retention [Unknown]
  - Drug ineffective [Unknown]
  - Weight increased [Unknown]

NARRATIVE: CASE EVENT DATE: 20241207
